FAERS Safety Report 4590157-4 (Version None)
Quarter: 2005Q1

REPORT INFORMATION
  Report Type: 
  Country: None (occurrence: None)
  Receive Date: 20050218
  Receipt Date: 20050218
  Transmission Date: 20050727
  Serious: No
  Sender: FDA-Public Use
  Company Number: None

PATIENT
  Age: 51 Year
  Sex: Male
  Weight: 68.0396 kg

DRUGS (1)
  1. FLOMAX [Suspect]
     Indication: BENIGN PROSTATIC HYPERPLASIA
     Dosage: 0.4 MG PO ONE DOSE
     Route: 048
     Dates: start: 20050216

REACTIONS (9)
  - BACK INJURY [None]
  - BACK PAIN [None]
  - DIZZINESS [None]
  - ERECTION INCREASED [None]
  - FEELING ABNORMAL [None]
  - HEAD INJURY [None]
  - INSOMNIA [None]
  - SYNCOPE [None]
  - TACHYCARDIA [None]
